FAERS Safety Report 5071365-5 (Version None)
Quarter: 2006Q3

REPORT INFORMATION
  Report Type: 
  Country: None (occurrence: None)
  Receive Date: 20060804
  Receipt Date: 20060209
  Transmission Date: 20061208
  Serious: No
  Sender: FDA-Public Use
  Company Number: US-AMGEN-US168233

PATIENT
  Sex: Male

DRUGS (14)
  1. ARANESP [Suspect]
     Indication: DIALYSIS
  2. AMLODIPINE [Concomitant]
  3. ASPIRIN [Concomitant]
  4. CIPRO [Concomitant]
  5. PLAVIX [Concomitant]
  6. NOVOLIN 70/30 [Concomitant]
  7. LINEZOLID [Concomitant]
  8. FLAGYL [Concomitant]
  9. PROTONIX [Concomitant]
  10. VITAMINS [Concomitant]
  11. LIPITOR [Concomitant]
  12. ZINC [Concomitant]
  13. HEPARIN [Concomitant]
  14. ZEMPLAR [Concomitant]

REACTIONS (2)
  - INFECTION [None]
  - THERAPEUTIC RESPONSE DECREASED [None]
